FAERS Safety Report 19923002 (Version 1)
Quarter: 2021Q4

REPORT INFORMATION
  Report Type: Spontaneous
  Country: CZ (occurrence: CZ)
  Receive Date: 20211006
  Receipt Date: 20211006
  Transmission Date: 20220303
  Serious: Yes (Other)
  Sender: FDA-Public Use
  Company Number: CZ-GYP-000003

PATIENT
  Age: 40 Year
  Weight: 80 kg

DRUGS (3)
  1. PREDNISONE [Suspect]
     Active Substance: PREDNISONE
     Indication: Insulin autoimmune syndrome
     Route: 048
  2. PREDNISONE [Suspect]
     Active Substance: PREDNISONE
     Indication: Insulin autoimmune syndrome
     Route: 065
  3. PREDNISONE [Suspect]
     Active Substance: PREDNISONE
     Indication: Insulin autoimmune syndrome

REACTIONS (3)
  - Drug ineffective [Unknown]
  - Deep vein thrombosis [Recovered/Resolved]
  - Product use in unapproved indication [Unknown]
